FAERS Safety Report 4678859-2 (Version None)
Quarter: 2005Q2

REPORT INFORMATION
  Report Type: 
  Country: None (occurrence: None)
  Receive Date: 20050531
  Receipt Date: 20050517
  Transmission Date: 20051028
  Serious: Yes (Other)
  Sender: FDA-Public Use
  Company Number: 2005075544

PATIENT
  Sex: Male

DRUGS (1)
  1. BENADRYL [Suspect]
     Indication: ACCIDENTAL OVERDOSE
     Dosage: 8 PILLS ONCE, ORAL
     Route: 048
     Dates: start: 20050517, end: 20050517

REACTIONS (3)
  - ACCIDENTAL EXPOSURE [None]
  - DYSPHEMIA [None]
  - FEELING ABNORMAL [None]
